FAERS Safety Report 9225564 (Version 1)
Quarter: 2013Q2

REPORT INFORMATION
  Report Type: Spontaneous
  Country: US (occurrence: None)
  Receive Date: 20130410
  Receipt Date: 20130410
  Transmission Date: 20140414
  Serious: No
  Sender: FDA-Public Use
  Company Number: None

PATIENT
  Sex: 0

DRUGS (3)
  1. GLUCOSE [Suspect]
     Dates: start: 20101001, end: 20130201
  2. GLUCOSE [Suspect]
     Dates: start: 20101001, end: 20130201
  3. GLUCOSE [Suspect]
     Dates: start: 20101001, end: 20130201

REACTIONS (2)
  - Underdose [None]
  - Drug label confusion [None]
